FAERS Safety Report 7658755-9 (Version None)
Quarter: 2011Q3

REPORT INFORMATION
  Report Type: 
  Country: None (occurrence: None)
  Receive Date: 20110805
  Receipt Date: 20110802
  Transmission Date: 20111222
  Serious: Yes (Other)
  Sender: FDA-Public Use
  Company Number: US-PFIZER INC-2011176475

PATIENT
  Sex: Male
  Weight: 76.19 kg

DRUGS (4)
  1. LYRICA [Suspect]
     Indication: SURGERY
     Dosage: 75 MG, 2X/DAY
     Route: 048
     Dates: start: 20110701
  2. BUPROPION [Concomitant]
     Dosage: 150 MG
  3. FLUOXETINE [Concomitant]
     Dosage: 10 MG
  4. WELLBUTRIN [Concomitant]
     Dosage: UNK

REACTIONS (2)
  - TREMOR [None]
  - PARKINSON'S DISEASE [None]
